FAERS Safety Report 25106065 (Version 1)
Quarter: 2025Q1

REPORT INFORMATION
  Report Type: Spontaneous
  Country: JP (occurrence: JP)
  Receive Date: 20250321
  Receipt Date: 20250321
  Transmission Date: 20250409
  Serious: Yes (Other)
  Sender: PFIZER
  Company Number: JP-PFIZER INC-202500060773

PATIENT

DRUGS (1)
  1. IBRANCE [Suspect]
     Active Substance: PALBOCICLIB

REACTIONS (2)
  - Myelosuppression [Unknown]
  - Haematotoxicity [Unknown]
